FAERS Safety Report 23290059 (Version 1)
Quarter: 2023Q4

REPORT INFORMATION
  Report Type: Report from Study
  Country: BR (occurrence: BR)
  Receive Date: 20231212
  Receipt Date: 20231212
  Transmission Date: 20240110
  Serious: Yes (Other)
  Sender: FDA-Public Use
  Company Number: BR-CELLTRION INC.-2023BR023675

PATIENT

DRUGS (1)
  1. INFLIXIMAB [Suspect]
     Active Substance: INFLIXIMAB
     Indication: Ankylosing spondylitis
     Dosage: 3 AMPOULES EVERY 8 WEEKS
     Route: 042
     Dates: start: 20220921

REACTIONS (2)
  - Retinal vein occlusion [Recovering/Resolving]
  - Weight gain poor [Recovering/Resolving]
